FAERS Safety Report 10577026 (Version 4)
Quarter: 2018Q1

REPORT INFORMATION
  Report Type: Spontaneous
  Country: US (occurrence: US)
  Receive Date: 20141111
  Receipt Date: 20180105
  Transmission Date: 20180508
  Serious: Yes (Hospitalization, Other)
  Sender: FDA-Public Use
  Company Number: US-PFIZER INC-2014307780

PATIENT
  Age: 55 Year
  Sex: Female
  Weight: 82 kg

DRUGS (2)
  1. CHANTIX [Suspect]
     Active Substance: VARENICLINE TARTRATE
     Indication: SMOKING CESSATION THERAPY
     Dosage: UNK
     Dates: start: 2004, end: 2005
  2. CHANTIX [Suspect]
     Active Substance: VARENICLINE TARTRATE
     Dosage: UNK
     Dates: start: 2005

REACTIONS (7)
  - Dysphonia [Unknown]
  - Oxygen saturation decreased [Not Recovered/Not Resolved]
  - Feeling abnormal [Unknown]
  - General physical health deterioration [Unknown]
  - Diabetes mellitus [Not Recovered/Not Resolved]
  - Myocardial necrosis marker increased [Unknown]
  - Fall [Unknown]

NARRATIVE: CASE EVENT DATE: 2006
